FAERS Safety Report 18046343 (Version 3)
Quarter: 2020Q3

REPORT INFORMATION
  Report Type: Spontaneous
  Country: PL (occurrence: PL)
  Receive Date: 20200720
  Receipt Date: 20200817
  Transmission Date: 20201103
  Serious: Yes (Hospitalization, Other)
  Sender: FDA-Public Use
  Company Number: NVSC2020PL202313

PATIENT
  Age: 42 Year
  Sex: Female

DRUGS (18)
  1. DEXAMETHASONE. [Suspect]
     Active Substance: DEXAMETHASONE
     Indication: NAUSEA
     Dosage: UNK
     Route: 065
  2. MORPHINE [Suspect]
     Active Substance: MORPHINE
     Indication: HYPERTENSION
  3. CIPROFLOXACIN. [Interacting]
     Active Substance: CIPROFLOXACIN
     Indication: PRODUCT USED FOR UNKNOWN INDICATION
     Dosage: 500 MG, BID
     Route: 048
  4. MIDAZOLAM. [Concomitant]
     Active Substance: MIDAZOLAM
     Dosage: UNK
     Route: 065
  5. DIMENHYDRINATE. [Suspect]
     Active Substance: DIMENHYDRINATE
     Indication: NAUSEA
     Dosage: UNK
     Route: 065
  6. QUETIAPINE. [Interacting]
     Active Substance: QUETIAPINE
     Indication: HYPERTENSION
     Dosage: 25 MG, QD, AT NIGHT
     Route: 065
  7. DEXAMETHASONE. [Suspect]
     Active Substance: DEXAMETHASONE
     Indication: VOMITING
  8. MORPHINE [Suspect]
     Active Substance: MORPHINE
     Indication: BREAST CANCER
     Dosage: 80 MG, BID
     Route: 065
  9. DULOXETINE. [Suspect]
     Active Substance: DULOXETINE
     Indication: HYPERTENSION
     Dosage: 90 MG, QD
     Route: 065
  10. METOCLOPRAMIDE. [Suspect]
     Active Substance: METOCLOPRAMIDE
     Indication: NAUSEA
  11. PREGABALIN. [Interacting]
     Active Substance: PREGABALIN
     Indication: HYPERTENSION
     Dosage: 300 MG, QD
     Route: 065
  12. OLANZAPINE. [Interacting]
     Active Substance: OLANZAPINE
     Indication: VOMITING
     Dosage: 5 MG
     Route: 065
  13. MIDAZOLAM. [Concomitant]
     Active Substance: MIDAZOLAM
     Indication: PRODUCT USED FOR UNKNOWN INDICATION
     Dosage: 5 MG
     Route: 042
  14. AMLODIPINE [Interacting]
     Active Substance: AMLODIPINE BESYLATE
     Indication: HYPERTENSION
     Dosage: 10 MG
     Route: 065
  15. DIMENHYDRINATE. [Suspect]
     Active Substance: DIMENHYDRINATE
     Indication: VOMITING
  16. METOCLOPRAMIDE. [Suspect]
     Active Substance: METOCLOPRAMIDE
     Indication: VOMITING
     Dosage: UNK
     Route: 065
  17. OLANZAPINE. [Interacting]
     Active Substance: OLANZAPINE
     Indication: ANTIEMETIC SUPPORTIVE CARE
     Dosage: 10 MG
     Route: 065
  18. PERINDOPRIL [Concomitant]
     Active Substance: PERINDOPRIL
     Indication: HYPERTENSION
     Route: 065

REACTIONS (12)
  - Paraesthesia [Unknown]
  - Drug ineffective [Unknown]
  - Nausea [Recovering/Resolving]
  - Tinnitus [Unknown]
  - Vomiting [Unknown]
  - Anxiety [Unknown]
  - Drug interaction [Unknown]
  - Dysuria [Unknown]
  - Thirst [Unknown]
  - Polydipsia [Unknown]
  - Off label use [Unknown]
  - Urinary retention [Unknown]
